FAERS Safety Report 4721255-X (Version None)
Quarter: 2005Q3

REPORT INFORMATION
  Report Type: 
  Country: None (occurrence: None)
  Receive Date: 20050720
  Receipt Date: 20050706
  Transmission Date: 20060218
  Serious: Yes (Hospitalization)
  Sender: FDA-Public Use
  Company Number: 2005FR-00124

PATIENT
  Age: 32 Year
  Sex: Female
  Weight: 30 kg

DRUGS (2)
  1. FLUOXETINE [Suspect]
     Indication: DEPRESSION
     Dosage: 20 MG QD ORAL
     Route: 048
  2. UNSPECIFIED ORAL CONTRACEPTIVE [Concomitant]

REACTIONS (1)
  - THROMBOSIS [None]
